FAERS Safety Report 8312141-7 (Version None)
Quarter: 2012Q2

REPORT INFORMATION
  Report Type: 
  Country: None (occurrence: None)
  Receive Date: 20120425
  Receipt Date: 20110808
  Transmission Date: 20120825
  Serious: Yes (Other)
  Sender: FDA-Public Use
  Company Number: US-TEVA-US017725

PATIENT
  Sex: Female
  Weight: 68 kg

DRUGS (2)
  1. PROVIGIL [Suspect]
     Indication: CIRCADIAN RHYTHM SLEEP DISORDER
     Dosage: 400 MILLIGRAM;
     Route: 048
     Dates: start: 20060504
  2. ORTHO TRI-CYCLEN [Suspect]
     Indication: CONTRACEPTION
     Route: 048

REACTIONS (2)
  - INHIBITORY DRUG INTERACTION [None]
  - METRORRHAGIA [None]
